FAERS Safety Report 8071961-7 (Version None)
Quarter: 2012Q1

REPORT INFORMATION
  Report Type: 
  Country: None (occurrence: None)
  Receive Date: 20120119
  Receipt Date: 20120105
  Transmission Date: 20120608
  Serious: Yes (Other)
  Sender: FDA-Public Use
  Company Number: 201201043

PATIENT

DRUGS (1)
  1. XIAFLEX [Suspect]
     Indication: PRODUCT USED FOR UNKNOWN INDICATION
     Dosage: 0.9 MG, INTRALESIONAL
     Route: 026
     Dates: start: 20110101, end: 20110101

REACTIONS (1)
  - SKIN LESION [None]
